FAERS Safety Report 23101145 (Version 2)
Quarter: 2023Q4

REPORT INFORMATION
  Report Type: Spontaneous
  Country: US (occurrence: US)
  Receive Date: 20231024
  Receipt Date: 20231026
  Transmission Date: 20240110
  Serious: Yes (Death, Other)
  Sender: FDA-Public Use
  Company Number: US-PFIZER INC-202300335836

PATIENT
  Age: 102 Year
  Sex: Female
  Weight: 63.5 kg

DRUGS (2)
  1. CYTOMEL [Suspect]
     Active Substance: LIOTHYRONINE SODIUM
     Indication: Thyroid disorder
     Dosage: 10 UG
     Dates: start: 2018
  2. CYTOMEL [Suspect]
     Active Substance: LIOTHYRONINE SODIUM
     Dosage: 25 UG, 2X/DAY

REACTIONS (9)
  - Death [Fatal]
  - Dementia [Unknown]
  - Hypothyroidism [Unknown]
  - Bacterial infection [Unknown]
  - Incorrect dose administered [Unknown]
  - Overdose [Unknown]
  - Cardiac disorder [Unknown]
  - Immune system disorder [Unknown]
  - Hypometabolism [Unknown]
